FAERS Safety Report 7378035-9 (Version None)
Quarter: 2011Q1

REPORT INFORMATION
  Report Type: 
  Country: None (occurrence: None)
  Receive Date: 20110328
  Receipt Date: 20110323
  Transmission Date: 20110831
  Serious: Yes (Other)
  Sender: FDA-Public Use
  Company Number: DE-PFIZER INC-2011057307

PATIENT
  Sex: Female

DRUGS (1)
  1. SORTIS [Suspect]
     Dosage: 40 MG, UNK
     Dates: start: 20070101

REACTIONS (4)
  - OEDEMA PERIPHERAL [None]
  - WEIGHT INCREASED [None]
  - ANGINA PECTORIS [None]
  - HEADACHE [None]
